FAERS Safety Report 6173577-6 (Version None)
Quarter: 2009Q2

REPORT INFORMATION
  Report Type: 
  Country: None (occurrence: None)
  Receive Date: 20090430
  Receipt Date: 20090429
  Transmission Date: 20091009
  Serious: Yes (Life-Threatening)
  Sender: FDA-Public Use
  Company Number: A0781209A

PATIENT
  Age: 54 Year
  Sex: Female

DRUGS (4)
  1. ALLI [Suspect]
     Route: 048
     Dates: end: 20090427
  2. ASPIRIN [Concomitant]
  3. CALCIUM [Concomitant]
  4. TYLENOL [Concomitant]

REACTIONS (7)
  - CONVULSION [None]
  - DEPRESSED LEVEL OF CONSCIOUSNESS [None]
  - DRUG INEFFECTIVE [None]
  - HYPERHIDROSIS [None]
  - NAUSEA [None]
  - RESPIRATION ABNORMAL [None]
  - RESPIRATORY RATE INCREASED [None]
